FAERS Safety Report 18695759 (Version 4)
Quarter: 2023Q2

REPORT INFORMATION
  Report Type: Other
  Country: US (occurrence: None)
  Receive Date: 20210104
  Receipt Date: 20230420
  Transmission Date: 20230722
  Serious: Yes (Hospitalization)
  Sender: FDA-Public Use
  Company Number: US-ROCHE-2742405

PATIENT
  Sex: Female
  Weight: 89.892 kg

DRUGS (7)
  1. OCREVUS [Suspect]
     Active Substance: OCRELIZUMAB
     Indication: Relapsing-remitting multiple sclerosis
     Route: 042
     Dates: start: 2017
  2. ORENCIA [Concomitant]
     Active Substance: ABATACEPT
     Indication: Psoriatic arthropathy
     Route: 042
     Dates: start: 2019, end: 202007
  3. ORENCIA [Concomitant]
     Active Substance: ABATACEPT
     Indication: Psoriasis
  4. HERBALS\TURMERIC [Concomitant]
     Active Substance: HERBALS\TURMERIC
     Route: 048
     Dates: start: 202010
  5. ERTAPENEM [Concomitant]
     Active Substance: ERTAPENEM
     Indication: Urinary tract infection
     Route: 042
  6. TIZANIDINE [Concomitant]
     Active Substance: TIZANIDINE
     Indication: Muscle spasms
     Route: 048
     Dates: start: 2015
  7. TIZANIDINE [Concomitant]
     Active Substance: TIZANIDINE
     Dosage: TWO 2 MG TABLETS AT BEDTIME
     Route: 048
     Dates: start: 2015

REACTIONS (7)
  - Urinary tract infection [Not Recovered/Not Resolved]
  - Therapeutic response shortened [Unknown]
  - Burning sensation [Not Recovered/Not Resolved]
  - Ear pruritus [Recovered/Resolved]
  - Rash [Recovered/Resolved]
  - Weight increased [Recovered/Resolved]
  - Drug ineffective [Not Recovered/Not Resolved]

NARRATIVE: CASE EVENT DATE: 20201001
